FAERS Safety Report 10011937 (Version 1)
Quarter: 2014Q1

REPORT INFORMATION
  Report Type: Spontaneous
  Country: US (occurrence: US)
  Receive Date: 20140314
  Receipt Date: 20140314
  Transmission Date: 20141002
  Serious: Yes (Hospitalization)
  Sender: FDA-Public Use
  Company Number: PHEH2014US005072

PATIENT
  Age: 61 Year
  Sex: 0

DRUGS (8)
  1. CLOZARIL [Suspect]
     Dosage: 375 MG, DAILY
     Route: 048
  2. CLOZARIL [Suspect]
     Dosage: 250 MG, DAILY
     Route: 048
  3. PAROXETINE HCL TABLETS [Suspect]
     Dosage: 40 MG, DAILY
     Route: 048
  4. COGENTIN [Suspect]
     Dosage: 1 MG, BID
     Route: 048
  5. TRAZODONE [Concomitant]
     Dosage: 50 TO 100 MG, UNK
     Route: 048
  6. HALOPERIDOL [Concomitant]
     Dosage: 5 MG, PRN
     Route: 048
  7. ATORVASTATIN [Concomitant]
     Dosage: 80 MG, QD
     Route: 048
  8. LEVANTIN [Concomitant]
     Dosage: 300 MG, TID
     Route: 048

REACTIONS (2)
  - Urinary retention [Recovered/Resolved]
  - Constipation [Recovered/Resolved]
